FAERS Safety Report 12586405 (Version 1)
Quarter: 2016Q3

REPORT INFORMATION
  Report Type: Spontaneous
  Country: US (occurrence: None)
  Receive Date: 20160722
  Receipt Date: 20160722
  Transmission Date: 20161109
  Serious: Yes (Other)
  Sender: FDA-Public Use
  Company Number: None

PATIENT
  Age: 45 Year
  Sex: Female
  Weight: 65.77 kg

DRUGS (2)
  1. MICROGESTON FE [Concomitant]
  2. MELOXICAM. [Suspect]
     Active Substance: MELOXICAM
     Indication: PAIN
     Dosage: 30 TABLET(S) ONCE A DAY TAKEN BY MOUTH
     Route: 048

REACTIONS (1)
  - Oedema [None]

NARRATIVE: CASE EVENT DATE: 20160720
